FAERS Safety Report 18889673 (Version 2)
Quarter: 2021Q2

REPORT INFORMATION
  Report Type: Spontaneous
  Country: US (occurrence: US)
  Receive Date: 20210213
  Receipt Date: 20210408
  Transmission Date: 20210717
  Serious: No
  Sender: FDA-Public Use
  Company Number: NVSC2021US030456

PATIENT
  Sex: Female

DRUGS (1)
  1. CIPROFLOXACIN HCL/DEXAMETHASONE [Suspect]
     Active Substance: CIPROFLOXACIN HYDROCHLORIDE\DEXAMETHASONE
     Indication: PRODUCT USED FOR UNKNOWN INDICATION
     Dosage: 7.5 ML
     Route: 065

REACTIONS (2)
  - Product delivery mechanism issue [Unknown]
  - Accidental exposure to product [Unknown]
